FAERS Safety Report 18463150 (Version 4)
Quarter: 2021Q3

REPORT INFORMATION
  Report Type: Spontaneous
  Country: GB (occurrence: GB)
  Receive Date: 20201104
  Receipt Date: 20210809
  Transmission Date: 20211014
  Serious: Yes (Death, Other)
  Sender: FDA-Public Use
  Company Number: GB-PFIZER INC-2020426718

PATIENT
  Age: 19 Year
  Sex: Female

DRUGS (1)
  1. DOXYCYCLINE MONOHYDRATE [Suspect]
     Active Substance: DOXYCYCLINE
     Indication: MALARIA PROPHYLAXIS
     Dosage: UNK

REACTIONS (9)
  - Anxiety [Unknown]
  - Mood swings [Unknown]
  - Psychotic disorder [Unknown]
  - Insomnia [Unknown]
  - Injury [Fatal]
  - Confusional state [Unknown]
  - Paranoia [Fatal]
  - Frustration tolerance decreased [Unknown]
  - Delirium [Unknown]

NARRATIVE: CASE EVENT DATE: 201907
